FAERS Safety Report 4581267-6 (Version None)
Quarter: 2005Q1

REPORT INFORMATION
  Report Type: 
  Country: None (occurrence: None)
  Receive Date: 20050127
  Receipt Date: 20040908
  Transmission Date: 20050727
  Serious: No
  Sender: FDA-Public Use
  Company Number: USA040977629

PATIENT
  Age: 16 Year
  Sex: Male
  Weight: 86 kg

DRUGS (2)
  1. STRATTERA [Suspect]
     Dates: start: 20040801
  2. DOXYCYCLINE [Concomitant]

REACTIONS (5)
  - ABDOMINAL PAIN UPPER [None]
  - CHROMATURIA [None]
  - DEHYDRATION [None]
  - FATIGUE [None]
  - INSOMNIA [None]
